FAERS Safety Report 17956527 (Version 1)
Quarter: 2020Q2

REPORT INFORMATION
  Report Type: Spontaneous
  Country: US (occurrence: US)
  Receive Date: 20200627
  Receipt Date: 20200627
  Transmission Date: 20200714
  Serious: Yes (Other)
  Sender: FDA-Public Use
  Company Number: None

PATIENT
  Age: 8 Year
  Sex: Male
  Weight: 72 kg

DRUGS (4)
  1. SINGULAIR [Suspect]
     Active Substance: MONTELUKAST SODIUM
     Indication: ASTHMA
     Route: 048
     Dates: start: 20041222, end: 20130101
  2. HYDROXYZINE [Concomitant]
     Active Substance: HYDROXYZINE HYDROCHLORIDE
  3. RIZATRIPTAN. [Concomitant]
     Active Substance: RIZATRIPTAN
  4. SINGULAIR [Suspect]
     Active Substance: MONTELUKAST SODIUM
     Indication: CHRONIC SINUSITIS
     Route: 048
     Dates: start: 20041222, end: 20130101

REACTIONS (20)
  - Depression [None]
  - Pain [None]
  - Aggression [None]
  - Anxiety [None]
  - Suicidal ideation [None]
  - Defiant behaviour [None]
  - Insomnia [None]
  - Muscle spasms [None]
  - Product use complaint [None]
  - Bruxism [None]
  - Mental disorder [None]
  - Disturbance in attention [None]
  - Agitation [None]
  - Restlessness [None]
  - Anger [None]
  - Irritability [None]
  - Memory impairment [None]
  - Obsessive-compulsive disorder [None]
  - Nightmare [None]
  - Behaviour disorder [None]

NARRATIVE: CASE EVENT DATE: 20130701
